FAERS Safety Report 21915605 (Version 1)
Quarter: 2023Q1

REPORT INFORMATION
  Report Type: Spontaneous
  Country: SA (occurrence: SA)
  Receive Date: 20230126
  Receipt Date: 20230126
  Transmission Date: 20230418
  Serious: Yes (Hospitalization, Other)
  Sender: FDA-Public Use
  Company Number: SA-GLAXOSMITHKLINE-SA2023GSK009979

PATIENT

DRUGS (3)
  1. LAMOTRIGINE [Interacting]
     Active Substance: LAMOTRIGINE
     Indication: Epilepsy
     Dosage: 25 MG, QOD
  2. LAMOTRIGINE [Interacting]
     Active Substance: LAMOTRIGINE
     Dosage: 25 MG, QD, DOSE INCREASED
  3. VALPROIC ACID [Interacting]
     Active Substance: VALPROIC ACID
     Indication: Epilepsy
     Dosage: TAPERED DOSES

REACTIONS (14)
  - Toxic epidermal necrolysis [Recovered/Resolved]
  - SJS-TEN overlap [Recovered/Resolved]
  - Rash [Recovered/Resolved]
  - Disease progression [Recovered/Resolved]
  - Condition aggravated [Recovered/Resolved]
  - Odynophagia [Recovered/Resolved]
  - Influenza like illness [Recovered/Resolved]
  - Nikolsky^s sign [Recovered/Resolved]
  - Rash maculo-papular [Recovered/Resolved]
  - Lip erosion [Recovered/Resolved]
  - Alopecia [Recovered/Resolved]
  - Skin exfoliation [Recovered/Resolved]
  - Mucosal disorder [Recovered/Resolved]
  - Drug interaction [Unknown]
